FAERS Safety Report 10789585 (Version 1)
Quarter: 2015Q1

REPORT INFORMATION
  Report Type: Spontaneous
  Country: US (occurrence: US)
  Receive Date: 20150212
  Receipt Date: 20150212
  Transmission Date: 20150721
  Serious: Yes (Hospitalization)
  Sender: FDA-Public Use
  Company Number: PHHY2015US016029

PATIENT
  Age: 73 Year
  Sex: Female

DRUGS (1)
  1. ZOLEDRONATE [Suspect]
     Active Substance: ZOLEDRONIC ACID
     Indication: OSTEOPOROSIS
     Route: 042

REACTIONS (9)
  - Jaw fracture [Unknown]
  - Gingivitis [Unknown]
  - Pain in jaw [Recovering/Resolving]
  - Oedema mouth [Unknown]
  - Crepitations [Unknown]
  - Osteonecrosis of jaw [Unknown]
  - Gingival discolouration [Unknown]
  - Gingival swelling [Unknown]
  - Bone pain [Recovering/Resolving]
